FAERS Safety Report 9419099 (Version 1)
Quarter: 2013Q3

REPORT INFORMATION
  Report Type: Spontaneous
  Country: GB (occurrence: GB)
  Receive Date: 20130725
  Receipt Date: 20130725
  Transmission Date: 20140515
  Serious: Yes (Life-Threatening, Other)
  Sender: FDA-Public Use
  Company Number: GB-NOVOPROD-383018

PATIENT
  Age: 46 Year
  Sex: Female
  Weight: 64 kg

DRUGS (4)
  1. NOVORAPID [Suspect]
     Indication: TYPE 1 DIABETES MELLITUS
     Route: 058
  2. COLESEVELAM [Suspect]
     Indication: DIARRHOEA
     Dosage: 1250 MG, TID
     Route: 048
     Dates: start: 20130620, end: 20130627
  3. ROSUVASTATIN [Concomitant]
  4. VESICARE [Concomitant]

REACTIONS (2)
  - Drug interaction [Recovered/Resolved]
  - Hypoglycaemia [Recovered/Resolved]
